FAERS Safety Report 9379507 (Version 1)
Quarter: 2013Q3

REPORT INFORMATION
  Report Type: Spontaneous
  Country: FR (occurrence: FR)
  Receive Date: 20130702
  Receipt Date: 20130702
  Transmission Date: 20140515
  Serious: Yes (Hospitalization)
  Sender: FDA-Public Use
  Company Number: FR-PFIZER INC-2013190715

PATIENT
  Age: 63 Year
  Sex: Female

DRUGS (5)
  1. ADRIBLASTINE [Suspect]
     Indication: LYMPHOMA
     Dosage: 76 MG, CYCLIC
     Route: 042
     Dates: start: 20090908, end: 20091222
  2. VINCRISTINE SULFATE [Suspect]
     Indication: LYMPHOMA
     Dosage: 2 MG, CYCLIC
     Route: 042
     Dates: start: 20090908, end: 20091222
  3. STEREOCYT [Suspect]
     Indication: LYMPHOMA
     Dosage: 300 MG, CYCLIC, 5 DAYS PER MONTH
     Route: 048
     Dates: start: 198810, end: 199003
  4. MABTHERA [Suspect]
     Indication: LYMPHOMA
     Dosage: 570 MG, CYCLIC
     Route: 042
     Dates: start: 20080627, end: 20111027
  5. ENDOXAN [Suspect]
     Indication: LYMPHOMA
     Dosage: 1140 MG, CYCLIC
     Route: 042
     Dates: start: 20090908, end: 20091222

REACTIONS (2)
  - Second primary malignancy [Not Recovered/Not Resolved]
  - Squamous cell carcinoma of the cervix [Not Recovered/Not Resolved]
